FAERS Safety Report 10183718 (Version 1)
Quarter: 2014Q2

REPORT INFORMATION
  Report Type: Spontaneous
  Country: US (occurrence: US)
  Receive Date: 20140520
  Receipt Date: 20140520
  Transmission Date: 20141212
  Serious: No
  Sender: FDA-Public Use
  Company Number: US-ENDO PHARMACEUTICALS INC.-GILD20130017

PATIENT
  Age: 21 Year
  Sex: Female

DRUGS (1)
  1. GILDESS FE 1.5/30 [Suspect]
     Indication: PRODUCT USED FOR UNKNOWN INDICATION
     Dosage: 1.5/30
     Route: 048
     Dates: start: 2012

REACTIONS (1)
  - Coeliac disease [Not Recovered/Not Resolved]
